FAERS Safety Report 12633335 (Version 2)
Quarter: 2016Q3

REPORT INFORMATION
  Report Type: Spontaneous
  Country: US (occurrence: US)
  Receive Date: 20160808
  Receipt Date: 20160808
  Transmission Date: 20161109
  Serious: No
  Sender: FDA-Public Use
  Company Number: US-BEH-2016060605

PATIENT
  Sex: Male
  Weight: 19 kg

DRUGS (9)
  1. OMEPRAZOLE. [Concomitant]
     Active Substance: OMEPRAZOLE
  2. HIZENTRA [Suspect]
     Active Substance: HUMAN IMMUNOGLOBULIN G
     Indication: SELECTIVE IGG SUBCLASS DEFICIENCY
     Route: 058
     Dates: start: 20140706
  3. PROBIOTIC [Concomitant]
     Active Substance: PROBIOTICS NOS
  4. HIZENTRA [Suspect]
     Active Substance: HUMAN IMMUNOGLOBULIN G
     Indication: IMMUNODEFICIENCY
     Route: 058
     Dates: start: 20140706
  5. MULTIVITAMINS [Concomitant]
     Active Substance: VITAMINS
  6. REVATIO [Concomitant]
     Active Substance: SILDENAFIL CITRATE
  7. CEFDINIR. [Concomitant]
     Active Substance: CEFDINIR
  8. EPIPEN [Concomitant]
     Active Substance: EPINEPHRINE
  9. LASIX [Concomitant]
     Active Substance: FUROSEMIDE

REACTIONS (1)
  - Otitis media [Unknown]
